FAERS Safety Report 9976083 (Version 1)
Quarter: 2014Q1

REPORT INFORMATION
  Report Type: Spontaneous
  Country: US (occurrence: US)
  Receive Date: 20140306
  Receipt Date: 20140306
  Transmission Date: 20141002
  Serious: No
  Sender: FDA-Public Use
  Company Number: US-BAXTER-2014BAX009502

PATIENT
  Sex: Male

DRUGS (2)
  1. GAMMAGARD LIQUID [Suspect]
     Indication: NEUROPATHY PERIPHERAL
     Dosage: ONE INFUSION DAILY FOR 5 CONSECUTIVE DAYS
     Route: 065
     Dates: start: 201401, end: 201401
  2. GAMMAGARD LIQUID [Suspect]
     Indication: OFF LABEL USE
     Dosage: ONE INFUSION DAILY FOR 2 CONSECUTIVE DAYS
     Route: 065
     Dates: start: 20140219, end: 20140220

REACTIONS (11)
  - Headache [Unknown]
  - Rash [Not Recovered/Not Resolved]
  - Fatigue [Unknown]
  - Hypertension [Unknown]
  - Dehydration [Unknown]
  - Rash pruritic [Not Recovered/Not Resolved]
  - Rash [Not Recovered/Not Resolved]
  - Skin discolouration [Recovered/Resolved]
  - Rash macular [Unknown]
  - Nausea [Unknown]
  - Chills [Unknown]
